FAERS Safety Report 5128108-6 (Version None)
Quarter: 2006Q4

REPORT INFORMATION
  Report Type: 
  Country: None (occurrence: None)
  Receive Date: 20061011
  Receipt Date: 20060926
  Transmission Date: 20070319
  Serious: Yes (Hospitalization)
  Sender: FDA-Public Use
  Company Number: 14892

PATIENT
  Age: 70 Year
  Sex: Male
  Weight: 72 kg

DRUGS (8)
  1. LEUCOVORIN CALCIUM [Suspect]
     Indication: BILIARY NEOPLASM
     Dosage: 25 MG/M2 DAILY IV
     Route: 042
     Dates: start: 20051212
  2. FLUOROURACIL [Suspect]
     Indication: BILIARY NEOPLASM
     Dosage: 375 MG/M2 DAILY IV
     Route: 042
     Dates: start: 20051212
  3. FLUOROURACIL [Suspect]
  4. RAMIPRIL [Concomitant]
  5. HYDROCHLOROTHIAZIDE [Concomitant]
  6. PANTOPRAZOLE SODIUM [Concomitant]
  7. GLYBURIDE [Concomitant]
  8. MYRRHINIL-INTEST [Concomitant]

REACTIONS (1)
  - ABDOMINAL PAIN LOWER [None]
